FAERS Safety Report 7699426-2 (Version None)
Quarter: 2011Q3

REPORT INFORMATION
  Report Type: 
  Country: None (occurrence: None)
  Receive Date: 20110820
  Receipt Date: 20100923
  Transmission Date: 20111222
  Serious: No
  Sender: FDA-Public Use
  Company Number: US-ALLERGAN-1010907US

PATIENT
  Age: 56 Year
  Sex: Female

DRUGS (7)
  1. LAMICTAL [Concomitant]
     Dosage: 250 MG, BID
  2. EFFEXOR [Concomitant]
     Dosage: 225 PG, UNK
  3. SANCTURA XR [Suspect]
     Indication: HYPERTONIC BLADDER
     Dosage: 60 MG, QD
     Route: 048
     Dates: start: 20100623
  4. CYMBALTA [Concomitant]
     Dosage: UNK
  5. AMBIEN [Concomitant]
     Dosage: 10 MG, QHS
  6. RITALIN [Concomitant]
     Dosage: UNK
  7. RISPERDAL [Concomitant]
     Dosage: 0.5 MG, QHS

REACTIONS (5)
  - HUNGER [None]
  - WEIGHT INCREASED [None]
  - DEPRESSION [None]
  - FATIGUE [None]
  - THERAPEUTIC RESPONSE UNEXPECTED [None]
